FAERS Safety Report 17259123 (Version 1)
Quarter: 2020Q1

REPORT INFORMATION
  Report Type: Report from Study
  Country: IT (occurrence: IT)
  Receive Date: 20200110
  Receipt Date: 20200110
  Transmission Date: 20200409
  Serious: Yes (Other)
  Sender: FDA-Public Use
  Company Number: IT-MYLANLABS-2020M1003314

PATIENT
  Age: 57 Year
  Sex: Female

DRUGS (3)
  1. PALEXIA [Concomitant]
     Active Substance: TAPENTADOL HYDROCHLORIDE
     Dosage: 50 MILLIGRAM
     Route: 048
  2. PACLITAXEL. [Suspect]
     Active Substance: PACLITAXEL
     Indication: OVARIAN CANCER
     Dosage: 95 MILLIGRAM, CYCLE
     Route: 042
     Dates: start: 20191031
  3. SIMECRIN [Concomitant]
     Dosage: 1 DOSAGE FORM
     Route: 048

REACTIONS (3)
  - Ascites [Recovering/Resolving]
  - Eating disorder [Recovering/Resolving]
  - Dyspnoea [Recovering/Resolving]

NARRATIVE: CASE EVENT DATE: 20191121
